FAERS Safety Report 11042153 (Version 2)
Quarter: 2015Q2

REPORT INFORMATION
  Report Type: Spontaneous
  Country: US (occurrence: US)
  Receive Date: 20150416
  Receipt Date: 20150525
  Transmission Date: 20150821
  Serious: Yes (Hospitalization)
  Sender: FDA-Public Use
  Company Number: US-JNJFOC-20131008294

PATIENT
  Age: 66 Year
  Sex: Male

DRUGS (4)
  1. RIVAROXABAN [Suspect]
     Active Substance: RIVAROXABAN
     Indication: PULMONARY EMBOLISM
     Route: 048
  2. RIVAROXABAN [Suspect]
     Active Substance: RIVAROXABAN
     Indication: PULMONARY EMBOLISM
     Route: 048
  3. RIVAROXABAN [Suspect]
     Active Substance: RIVAROXABAN
     Indication: INTERNATIONAL NORMALISED RATIO FLUCTUATION
     Route: 048
  4. RIVAROXABAN [Suspect]
     Active Substance: RIVAROXABAN
     Indication: INTERNATIONAL NORMALISED RATIO FLUCTUATION
     Route: 048

REACTIONS (2)
  - Gastrointestinal haemorrhage [Unknown]
  - Laboratory test interference [Unknown]
